FAERS Safety Report 9381005 (Version 2)
Quarter: 2013Q3

REPORT INFORMATION
  Report Type: Spontaneous
  Country: JP (occurrence: JP)
  Receive Date: 20130703
  Receipt Date: 20130712
  Transmission Date: 20140515
  Serious: No
  Sender: FDA-Public Use
  Company Number: JP-BRISTOL-MYERS SQUIBB COMPANY-19056225

PATIENT
  Age: 41 Year
  Sex: Male

DRUGS (5)
  1. ABILIFY TABS [Suspect]
     Indication: SCHIZOPHRENIA
     Route: 048
  2. INVEGA [Suspect]
     Route: 048
  3. WYPAX [Suspect]
     Dosage: TAB
     Route: 048
  4. ROHYPNOL [Suspect]
  5. VEGETAMIN A [Suspect]
     Route: 048

REACTIONS (1)
  - Rash [Unknown]
